FAERS Safety Report 5370465-X (Version None)
Quarter: 2007Q2

REPORT INFORMATION
  Report Type: 
  Country: None (occurrence: None)
  Receive Date: 20070626
  Receipt Date: 20070312
  Transmission Date: 20071010
  Serious: No
  Sender: FDA-Public Use
  Company Number: US-AMGEN-US214562

PATIENT
  Sex: Female

DRUGS (7)
  1. ARANESP [Suspect]
     Indication: ANAEMIA
     Route: 058
  2. LANTUS [Concomitant]
     Route: 065
  3. SYNTHROID [Concomitant]
     Route: 065
  4. SINGULAIR [Concomitant]
     Route: 065
  5. ALDACTONE [Concomitant]
     Route: 065
  6. NEPHRO-CAPS [Concomitant]
     Route: 065
  7. NIFEREX [Concomitant]
     Route: 065

REACTIONS (1)
  - INJECTION SITE IRRITATION [None]
